FAERS Safety Report 6671634-9 (Version None)
Quarter: 2010Q2

REPORT INFORMATION
  Report Type: 
  Country: None (occurrence: None)
  Receive Date: 20100406
  Receipt Date: 20100406
  Transmission Date: 20101027
  Serious: Yes (Death)
  Sender: FDA-Public Use
  Company Number: None

PATIENT
  Age: 39 Year
  Sex: Female
  Weight: 54.4316 kg

DRUGS (1)
  1. OCELLA OCP [Suspect]
     Indication: ACNE
     Dosage: 1 PILL QD QD ORAL
     Route: 048

REACTIONS (1)
  - PULMONARY EMBOLISM [None]
